FAERS Safety Report 4644577-X (Version None)
Quarter: 2005Q2

REPORT INFORMATION
  Report Type: 
  Country: None (occurrence: None)
  Receive Date: 20050426
  Receipt Date: 20050415
  Transmission Date: 20051028
  Serious: Yes (Life-Threatening, Hospitalization)
  Sender: FDA-Public Use
  Company Number: 200513345GDDC

PATIENT
  Age: 42 Year
  Sex: Female

DRUGS (1)
  1. TAXOTERE [Suspect]
     Indication: BREAST CANCER
     Route: 042

REACTIONS (4)
  - CARDIAC ARREST [None]
  - SINUS RHYTHM [None]
  - VENTRICULAR FIBRILLATION [None]
  - VENTRICULAR TACHYCARDIA [None]
